FAERS Safety Report 6493977-4 (Version None)
Quarter: 2009Q4

REPORT INFORMATION
  Report Type: 
  Country: None (occurrence: None)
  Receive Date: 20091214
  Receipt Date: 20081223
  Transmission Date: 20100525
  Serious: No
  Sender: FDA-Public Use
  Company Number: US-BRISTOL-MYERS SQUIBB COMPANY-14429047

PATIENT
  Age: 57 Year
  Sex: Female

DRUGS (6)
  1. ABILIFY [Suspect]
     Indication: MAJOR DEPRESSION
     Dates: start: 20060419
  2. ABILIFY [Suspect]
     Indication: DEPRESSION
     Dates: start: 20060419
  3. LEXAPRO [Suspect]
  4. WELLBUTRIN [Suspect]
  5. ESBERITOX [Suspect]
  6. PAMELOR [Suspect]

REACTIONS (1)
  - HYPOMANIA [None]
